FAERS Safety Report 5240125-4 (Version None)
Quarter: 2007Q1

REPORT INFORMATION
  Report Type: 
  Country: None (occurrence: None)
  Receive Date: 20070216
  Receipt Date: 20070208
  Transmission Date: 20070707
  Serious: Yes (Other)
  Sender: FDA-Public Use
  Company Number: FI-PFIZER INC-2007010817

PATIENT
  Age: 40 Year
  Sex: Female

DRUGS (3)
  1. CHAMPIX [Suspect]
     Indication: EX-SMOKER
     Route: 048
  2. DOXAL [Concomitant]
  3. ZITHROMAX [Concomitant]

REACTIONS (2)
  - BLOOD GLUCOSE DECREASED [None]
  - NAUSEA [None]
